FAERS Safety Report 8007290-7 (Version None)
Quarter: 2011Q4

REPORT INFORMATION
  Report Type: 
  Country: None (occurrence: None)
  Receive Date: 20111227
  Receipt Date: 20111222
  Transmission Date: 20120403
  Serious: Yes (Other)
  Sender: FDA-Public Use
  Company Number: US-PFIZER INC-2011312397

PATIENT
  Sex: Female
  Weight: 68.027 kg

DRUGS (12)
  1. PREMARIN [Concomitant]
     Dosage: 0.625 MG, DAILY
  2. CELEBREX [Concomitant]
     Dosage: 200 MG, DAILY
  3. LORATADINE [Concomitant]
     Dosage: 10 MG, DAILY
  4. CHANTIX [Suspect]
     Indication: SMOKING CESSATION THERAPY
     Dosage: 0.5 MG, UNK
     Dates: start: 20111201
  5. LEXAPRO [Concomitant]
     Dosage: 120 MG, UNK
  6. LORAZEPAM [Concomitant]
     Dosage: 1 MG, 3X/DAY
  7. LATUDA [Concomitant]
     Dosage: 40 MG, DAILY
  8. NEXIUM [Concomitant]
     Dosage: 40 MG, DAILY
  9. METHYLPHENIDATE [Concomitant]
     Dosage: 80 MG, UNK
  10. WELLBUTRIN [Concomitant]
     Dosage: 300 MG, DAILY
  11. KAPVAY [Concomitant]
     Dosage: 1 MG, 3X/DAY
  12. ROPINIROLE HYDROCHLORIDE [Concomitant]
     Dosage: 5MG THREE TOGETHER, DAILY

REACTIONS (2)
  - BLISTER [None]
  - ERYTHEMA [None]
